FAERS Safety Report 4534072-0 (Version None)
Quarter: 2004Q4

REPORT INFORMATION
  Report Type: 
  Country: None (occurrence: None)
  Receive Date: 20041214
  Receipt Date: 20040830
  Transmission Date: 20050328
  Serious: No
  Sender: FDA-Public Use
  Company Number: USA040876941

PATIENT
  Age: 56 Year
  Sex: Male
  Weight: 76 kg

DRUGS (1)
  1. CIALIS [Suspect]
     Indication: SEXUAL DYSFUNCTION
     Dosage: 20 MG
     Dates: start: 20040828, end: 20040828

REACTIONS (3)
  - PHARYNGITIS [None]
  - THROAT IRRITATION [None]
  - THROAT TIGHTNESS [None]
